FAERS Safety Report 22535555 (Version 1)
Quarter: 2023Q2

REPORT INFORMATION
  Report Type: Spontaneous
  Country: US (occurrence: None)
  Receive Date: 20230606
  Receipt Date: 20230606
  Transmission Date: 20230721
  Serious: Yes (Hospitalization)
  Sender: FDA-Public Use
  Company Number: None

PATIENT
  Sex: Male

DRUGS (4)
  1. NIVESTYM [Suspect]
     Active Substance: FILGRASTIM-AAFI
     Indication: Thrombocytopenia
     Dosage: FREQUENCY : DAILY;?
     Route: 058
     Dates: start: 202305
  2. NIVESTYM [Suspect]
     Active Substance: FILGRASTIM-AAFI
     Indication: Wiskott-Aldrich syndrome
  3. NIVESTYM [Suspect]
     Active Substance: FILGRASTIM-AAFI
     Indication: Bone marrow transplant
  4. Sildenafil Suspension [Concomitant]

REACTIONS (1)
  - Cytomegalovirus infection [None]
